FAERS Safety Report 18264253 (Version 6)
Quarter: 2022Q1

REPORT INFORMATION
  Report Type: Report from Study
  Country: BR (occurrence: BR)
  Receive Date: 20200914
  Receipt Date: 20220308
  Transmission Date: 20220424
  Serious: Yes (Other)
  Sender: FDA-Public Use
  Company Number: BR-SHIRE-BR202010244

PATIENT
  Age: 39 Year
  Sex: Male
  Weight: 51 kg

DRUGS (9)
  1. ANTI-INHIBITOR COAGULANT COMPLEX [Suspect]
     Active Substance: ANTI-INHIBITOR COAGULANT COMPLEX
     Indication: Factor VIII deficiency
     Dosage: 5000 INTERNATIONAL UNIT; ON DEMAND
     Route: 042
     Dates: start: 19830503
  2. ANTI-INHIBITOR COAGULANT COMPLEX [Suspect]
     Active Substance: ANTI-INHIBITOR COAGULANT COMPLEX
     Dosage: 5000 INTERNATIONAL UNIT, 3X A WEEK
     Route: 042
     Dates: start: 19830503
  3. ANTI-INHIBITOR COAGULANT COMPLEX [Suspect]
     Active Substance: ANTI-INHIBITOR COAGULANT COMPLEX
     Dosage: 5000 INTERNATIONAL UNIT
     Route: 042
     Dates: start: 19830503
  4. ANTI-INHIBITOR COAGULANT COMPLEX [Suspect]
     Active Substance: ANTI-INHIBITOR COAGULANT COMPLEX
     Dosage: 5000 INTERNATIONAL UNIT, AS REQ^D
     Route: 042
     Dates: start: 202002
  5. ANTI-INHIBITOR COAGULANT COMPLEX [Suspect]
     Active Substance: ANTI-INHIBITOR COAGULANT COMPLEX
     Dosage: 5000 INTERNATIONAL UNIT, AS REQ^D
     Route: 042
     Dates: start: 20210503
  6. HEMO-8R [Suspect]
     Active Substance: ANTIHEMOPHILIC FACTOR, HUMAN RECOMBINANT
     Indication: Factor VIII deficiency
     Dosage: 2500 INTERNATIONAL UNIT, 3/WEEK
     Route: 042
     Dates: start: 19830503
  7. HEMO-8R [Suspect]
     Active Substance: ANTIHEMOPHILIC FACTOR, HUMAN RECOMBINANT
     Dosage: 2500 INTERNATIONAL UNIT, 3/WEEK
     Route: 042
     Dates: start: 19830503
  8. HEMO-8R [Suspect]
     Active Substance: ANTIHEMOPHILIC FACTOR, HUMAN RECOMBINANT
     Dosage: 2500 INTERNATIONAL UNIT, 3/WEEK
     Route: 042
     Dates: start: 19830503
  9. HEMO-8R [Suspect]
     Active Substance: ANTIHEMOPHILIC FACTOR, HUMAN RECOMBINANT
     Dosage: 2500 INTERNATIONAL UNIT, 3/WEEK
     Route: 042
     Dates: start: 20210503

REACTIONS (15)
  - Anti factor VIII antibody positive [Recovering/Resolving]
  - Haemarthrosis [Recovered/Resolved]
  - Haemorrhage [Recovered/Resolved]
  - Pain in extremity [Recovered/Resolved]
  - Ligament sprain [Recovered/Resolved]
  - Weight increased [Recovering/Resolving]
  - Joint injury [Recovered/Resolved]
  - Peripheral swelling [Not Recovered/Not Resolved]
  - Osteoarthritis [Recovering/Resolving]
  - Joint dislocation [Recovered/Resolved]
  - Limb injury [Recovered/Resolved]
  - Pain [Unknown]
  - Road traffic accident [Recovering/Resolving]
  - Product availability issue [Not Recovered/Not Resolved]
  - Inappropriate schedule of product administration [Not Recovered/Not Resolved]

NARRATIVE: CASE EVENT DATE: 20200428
